APPROVED DRUG PRODUCT: CYPROHEPTADINE HYDROCHLORIDE
Active Ingredient: CYPROHEPTADINE HYDROCHLORIDE
Strength: 2MG/5ML
Dosage Form/Route: SYRUP;ORAL
Application: A087001 | Product #001
Applicant: MORTON GROVE PHARMACEUTICALS INC
Approved: Nov 4, 1982 | RLD: No | RS: No | Type: DISCN